FAERS Safety Report 23684001 (Version 2)
Quarter: 2024Q2

REPORT INFORMATION
  Report Type: Spontaneous
  Country: US (occurrence: US)
  Receive Date: 20240328
  Receipt Date: 20240614
  Transmission Date: 20240716
  Serious: No
  Sender: FDA-Public Use
  Company Number: US-BRISTOL-MYERS SQUIBB COMPANY-2024-044885

PATIENT
  Age: 74 Year
  Sex: Female
  Weight: 65.77 kg

DRUGS (2)
  1. REVLIMID [Suspect]
     Active Substance: LENALIDOMIDE
     Indication: Follicular lymphoma
     Route: 048
  2. REVLIMID [Suspect]
     Active Substance: LENALIDOMIDE
     Indication: Follicular lymphoma stage I

REACTIONS (5)
  - Joint stiffness [Unknown]
  - Muscle spasms [Unknown]
  - Limb discomfort [Unknown]
  - Fatigue [Unknown]
  - Decreased appetite [Unknown]
